FAERS Safety Report 6571265-5 (Version None)
Quarter: 2010Q1

REPORT INFORMATION
  Report Type: 
  Country: None (occurrence: None)
  Receive Date: 20100129
  Receipt Date: 20100120
  Transmission Date: 20100710
  Serious: Yes (Disabling)
  Sender: FDA-Public Use
  Company Number: TCI2010A00146

PATIENT
  Sex: Male

DRUGS (1)
  1. ACTOS [Suspect]
     Indication: DIABETES MELLITUS
     Dosage: 15 MG (15 MG,1 D), PER ORAL
     Route: 048
     Dates: start: 20091224, end: 20100113

REACTIONS (2)
  - RENAL FAILURE [None]
  - URINARY RETENTION [None]
